FAERS Safety Report 9289923 (Version 1)
Quarter: 2013Q2

REPORT INFORMATION
  Report Type: Spontaneous
  Country: CA (occurrence: CA)
  Receive Date: 20130515
  Receipt Date: 20130515
  Transmission Date: 20140414
  Serious: Yes (Hospitalization, Other)
  Sender: FDA-Public Use
  Company Number: CA-AMGEN-CANSP2013032412

PATIENT
  Age: 50 Year
  Sex: Male

DRUGS (19)
  1. ARANESP [Suspect]
     Indication: RENAL FAILURE CHRONIC
     Dosage: 80 MUG, UNK
  2. ADALATE [Concomitant]
  3. ZAROXOLYN [Concomitant]
  4. MONOCOR [Concomitant]
  5. ZANTAC [Concomitant]
  6. COUMADIN                           /00014802/ [Concomitant]
  7. SYNTHROID [Concomitant]
  8. COLCHICINE [Concomitant]
  9. DOXYCINE [Concomitant]
  10. OXCARBAZEPINE [Concomitant]
  11. ATROVENT [Concomitant]
  12. VENTOLIN                           /00139501/ [Concomitant]
  13. ANDROGEL [Concomitant]
  14. FLOMAX                             /00889901/ [Concomitant]
  15. CALCIUM [Concomitant]
  16. MAXERAN [Concomitant]
  17. RENAGEL                            /01459901/ [Concomitant]
  18. REPLAVITE                          /00058902/ [Concomitant]
  19. ROCALTROL [Concomitant]

REACTIONS (3)
  - Haemorrhage [Not Recovered/Not Resolved]
  - Haemoglobin decreased [Not Recovered/Not Resolved]
  - Abdominal distension [Not Recovered/Not Resolved]
